FAERS Safety Report 4434091-9 (Version None)
Quarter: 2004Q3

REPORT INFORMATION
  Report Type: 
  Country: None (occurrence: None)
  Receive Date: 20040826
  Receipt Date: 20040817
  Transmission Date: 20050211
  Serious: Yes (Other)
  Sender: FDA-Public Use
  Company Number: PHBS2004CA10887

PATIENT
  Sex: Male

DRUGS (7)
  1. CLOZARIL [Suspect]
     Dosage: 12.5 MG/D
     Route: 048
     Dates: start: 20040728
  2. CLOZARIL [Suspect]
     Dosage: 75 MG/D
     Route: 048
     Dates: start: 20040731
  3. INDERAL [Concomitant]
     Route: 065
  4. SEROQUEL [Concomitant]
     Dosage: 400 MG, QHS
     Route: 065
  5. VALPROIC ACID [Concomitant]
     Dosage: 500 MG, BID
     Route: 065
  6. RISPERDAL [Concomitant]
     Dosage: 4 MG/D
     Route: 065
  7. OMEGA 3 [Concomitant]
     Route: 065

REACTIONS (15)
  - ASTHENIA [None]
  - ERYTHEMA [None]
  - FATIGUE [None]
  - HAEMATOCRIT DECREASED [None]
  - HEADACHE [None]
  - HEART RATE INCREASED [None]
  - HYPERHIDROSIS [None]
  - MYALGIA [None]
  - NASAL CONGESTION [None]
  - NASOPHARYNGITIS [None]
  - NEUTROPHIL COUNT INCREASED [None]
  - PHARYNGOLARYNGEAL PAIN [None]
  - PYREXIA [None]
  - SOMNOLENCE [None]
  - WHITE BLOOD CELL COUNT INCREASED [None]
